FAERS Safety Report 7357246-2 (Version None)
Quarter: 2011Q1

REPORT INFORMATION
  Report Type: 
  Country: None (occurrence: None)
  Receive Date: 20110311
  Receipt Date: 20110311
  Transmission Date: 20110831
  Serious: Yes (Other)
  Sender: FDA-Public Use
  Company Number: None

PATIENT
  Sex: Female

DRUGS (1)
  1. BISOPROLOL FUMARATE [Suspect]
     Indication: HYPERTENSION
     Dosage: 2.5 MG BID PO
     Route: 048

REACTIONS (3)
  - BLOOD PRESSURE INCREASED [None]
  - URINE ODOUR ABNORMAL [None]
  - PRODUCT QUALITY ISSUE [None]
